FAERS Safety Report 9356552 (Version 1)
Quarter: 2013Q2

REPORT INFORMATION
  Report Type: Spontaneous
  Country: US (occurrence: US)
  Receive Date: 20130619
  Receipt Date: 20130619
  Transmission Date: 20140414
  Serious: Yes (Disabling)
  Sender: FDA-Public Use
  Company Number: US-MYLANLABS-2013S1012794

PATIENT
  Age: 55 Year
  Sex: Female
  Weight: 63.5 kg

DRUGS (6)
  1. BUPROPION HYDROCHLORIDE TABLETS [Suspect]
     Indication: DEPRESSION
  2. LYRICA [Suspect]
     Indication: FIBROMYALGIA
     Dates: end: 2011
  3. ZOLOFT [Suspect]
     Indication: DEPRESSION
  4. CYMBALTA [Suspect]
     Indication: DEPRESSION
  5. GABAPENTIN [Suspect]
     Indication: FIBROMYALGIA
     Dates: start: 2012
  6. IBUPROFEN [Suspect]
     Indication: PAIN

REACTIONS (13)
  - Drug ineffective [Not Recovered/Not Resolved]
  - Depression [Recovering/Resolving]
  - Hypersomnia [Not Recovered/Not Resolved]
  - Unevaluable event [Not Recovered/Not Resolved]
  - Impaired work ability [Not Recovered/Not Resolved]
  - Pain [Not Recovered/Not Resolved]
  - Unevaluable event [Not Recovered/Not Resolved]
  - Malaise [Recovering/Resolving]
  - Unevaluable event [Not Recovered/Not Resolved]
  - Weight increased [Not Recovered/Not Resolved]
  - Sleep apnoea syndrome [Not Recovered/Not Resolved]
  - Adverse event [Not Recovered/Not Resolved]
  - Visual impairment [Not Recovered/Not Resolved]
